FAERS Safety Report 23960603 (Version 1)
Quarter: 2024Q2

REPORT INFORMATION
  Report Type: Spontaneous
  Country: RO (occurrence: RO)
  Receive Date: 20240611
  Receipt Date: 20240611
  Transmission Date: 20240716
  Serious: Yes (Other)
  Sender: FDA-Public Use
  Company Number: RO-002147023-NVSC2024RO112309

PATIENT
  Age: 63 Year
  Sex: Male

DRUGS (2)
  1. BOSUTINIB [Suspect]
     Active Substance: BOSUTINIB
     Dosage: UNK
     Dates: start: 202302
  2. HYDREA [Suspect]
     Active Substance: HYDROXYUREA
     Dosage: UNK
     Dates: start: 202305, end: 202401

REACTIONS (4)
  - Cardiac failure [Recovered/Resolved]
  - Pleurisy [Unknown]
  - Cardiac failure [Unknown]
  - Ventricular extrasystoles [Unknown]
